FAERS Safety Report 10185424 (Version 6)
Quarter: 2016Q1

REPORT INFORMATION
  Report Type: Spontaneous
  Country: US (occurrence: US)
  Receive Date: 20140521
  Receipt Date: 20160225
  Transmission Date: 20160525
  Serious: No
  Sender: FDA-Public Use
  Company Number: US-PFIZER INC-2014138566

PATIENT
  Age: 76 Year
  Sex: Female
  Weight: 76 kg

DRUGS (4)
  1. CORTEF [Suspect]
     Active Substance: HYDROCORTISONE
     Dosage: STRENGTH: 100 MG, 1 AM + HS 1@NOON
  2. LEVOXYL [Suspect]
     Active Substance: LEVOTHYROXINE SODIUM
     Indication: PRIMARY HYPOTHYROIDISM
     Dosage: 112 UG, 1X/DAY
     Route: 048
  3. CORTEF [Suspect]
     Active Substance: HYDROCORTISONE
     Indication: PRIMARY ADRENAL INSUFFICIENCY
     Dosage: 10 MG, 4X/DAY (1 IN AM 2 IN AFTERNOON 1 AT HS)
     Route: 048
  4. LYRICA [Suspect]
     Active Substance: PREGABALIN
     Indication: DIABETIC NEUROPATHY
     Dosage: 25 MG, 3X/DAY
     Dates: start: 201405

REACTIONS (4)
  - Headache [Unknown]
  - Eye disorder [Unknown]
  - Amnesia [Unknown]
  - Malaise [Unknown]
